FAERS Safety Report 26131934 (Version 1)
Quarter: 2025Q4

REPORT INFORMATION
  Report Type: Spontaneous
  Country: EU (occurrence: EU)
  Receive Date: 20251208
  Receipt Date: 20251208
  Transmission Date: 20260118
  Serious: Yes (Other)
  Sender: PFIZER
  Company Number: None

PATIENT
  Age: 50 Year
  Sex: Female
  Weight: 63 kg

DRUGS (1)
  1. ALDACTONE [Suspect]
     Active Substance: SPIRONOLACTONE
     Indication: Hypertension
     Dosage: 2 TABLETS/DAY, 1 EVERY 12 HOURS
     Route: 048
     Dates: start: 20251015, end: 20251121

REACTIONS (1)
  - Breast inflammation [Recovering/Resolving]

NARRATIVE: CASE EVENT DATE: 20251115
